APPROVED DRUG PRODUCT: CHLORTHALIDONE
Active Ingredient: CHLORTHALIDONE
Strength: 50MG
Dosage Form/Route: TABLET;ORAL
Application: A087247 | Product #001
Applicant: SUPERPHARM CORP
Approved: Feb 9, 1983 | RLD: No | RS: No | Type: DISCN